FAERS Safety Report 10915304 (Version 2)
Quarter: 2015Q2

REPORT INFORMATION
  Report Type: Spontaneous
  Country: US (occurrence: US)
  Receive Date: 20150316
  Receipt Date: 20150406
  Transmission Date: 20150821
  Serious: Yes (Hospitalization, Other)
  Sender: FDA-Public Use
  Company Number: US-AMGEN-USASP2015023538

PATIENT
  Age: 29 Year
  Sex: Female

DRUGS (1)
  1. ENBREL [Suspect]
     Active Substance: ETANERCEPT
     Indication: PSORIATIC ARTHROPATHY
     Dosage: UNK UNK, Q2WK
     Route: 065
     Dates: start: 2002

REACTIONS (5)
  - Breech presentation [Recovered/Resolved]
  - Hypertension [Recovered/Resolved]
  - Pregnancy [Recovered/Resolved]
  - Pain in extremity [Not Recovered/Not Resolved]
  - Psoriasis [Not Recovered/Not Resolved]

NARRATIVE: CASE EVENT DATE: 200401
